FAERS Safety Report 20055940 (Version 1)
Quarter: 2021Q4

REPORT INFORMATION
  Report Type: Report from Study
  Country: CA (occurrence: CA)
  Receive Date: 20211111
  Receipt Date: 20211111
  Transmission Date: 20220303
  Serious: Yes (Other)
  Sender: FDA-Public Use
  Company Number: CA-JNJFOC-20211115980

PATIENT
  Age: 15 Year
  Sex: Female
  Weight: 82.8 kg

DRUGS (1)
  1. REMICADE [Suspect]
     Active Substance: INFLIXIMAB
     Indication: Colitis ulcerative
     Dosage: THERAPY START DATE ALSO REPORTED ON 09/OCT/2021?6TH INFUSION ON 5-NOV-2021
     Route: 042
     Dates: start: 20210726

REACTIONS (3)
  - Haematochezia [Unknown]
  - Frequent bowel movements [Not Recovered/Not Resolved]
  - General physical health deterioration [Unknown]

NARRATIVE: CASE EVENT DATE: 20211104
